FAERS Safety Report 10810995 (Version 2)
Quarter: 2015Q2

REPORT INFORMATION
  Report Type: Spontaneous
  Country: DE (occurrence: None)
  Receive Date: 20150212
  Receipt Date: 20150526
  Transmission Date: 20150821
  Serious: Yes (Hospitalization, Other)
  Sender: FDA-Public Use
  Company Number: DE2015GSK016660

PATIENT
  Sex: Male
  Weight: 95 kg

DRUGS (3)
  1. TIVICAY [Suspect]
     Active Substance: DOLUTEGRAVIR SODIUM
     Indication: PRODUCT USED FOR UNKNOWN INDICATION
  2. KIVEXA (ABACAVIR SULPHATE, LAMIVUDINE) [Concomitant]
  3. VIRAMUNE [Concomitant]
     Active Substance: NEVIRAPINE

REACTIONS (1)
  - Osteonecrosis [None]
